FAERS Safety Report 24165915 (Version 2)
Quarter: 2024Q3

REPORT INFORMATION
  Report Type: Spontaneous
  Country: DE (occurrence: DE)
  Receive Date: 20240802
  Receipt Date: 20240920
  Transmission Date: 20241016
  Serious: Yes (Other)
  Sender: AMGEN
  Company Number: DE-AMGEN-DEUSP2024148621

PATIENT
  Age: 61 Year
  Sex: Female

DRUGS (3)
  1. PROLIA [Suspect]
     Active Substance: DENOSUMAB
     Indication: Polymyositis
     Dosage: 60 MILLIGRAM PER MILLILITRE, Q6MO
     Route: 065
     Dates: start: 20210531, end: 20240406
  2. CORTISONE [Concomitant]
     Active Substance: CORTISONE
     Dosage: 50 MILLIGRAM, QMO
     Route: 042
  3. VITAMIN D [Concomitant]
     Active Substance: VITAMIN D NOS
     Route: 065

REACTIONS (5)
  - Spinal fracture [Unknown]
  - Lower limb fracture [Unknown]
  - Therapeutic product effect decreased [Unknown]
  - Laboratory test abnormal [Unknown]
  - Rib fracture [Unknown]

NARRATIVE: CASE EVENT DATE: 20210101
